FAERS Safety Report 6905259-4 (Version None)
Quarter: 2010Q3

REPORT INFORMATION
  Report Type: 
  Country: None (occurrence: None)
  Receive Date: 20100804
  Receipt Date: 20100726
  Transmission Date: 20110219
  Serious: Yes (Hospitalization)
  Sender: FDA-Public Use
  Company Number: BE-SANOFI-AVENTIS-2010SA038384

PATIENT
  Age: 64 Year
  Sex: Male

DRUGS (10)
  1. OXALIPLATIN [Suspect]
     Route: 041
     Dates: start: 20100601, end: 20100601
  2. OXALIPLATIN [Suspect]
     Route: 041
     Dates: start: 20100615, end: 20100615
  3. FLUOROURACIL [Suspect]
     Route: 041
     Dates: start: 20100601, end: 20100601
  4. FLUOROURACIL [Suspect]
     Route: 041
     Dates: start: 20100615, end: 20100615
  5. BEVACIZUMAB [Suspect]
     Route: 041
     Dates: start: 20100601, end: 20100601
  6. BEVACIZUMAB [Suspect]
     Route: 041
     Dates: start: 20100615, end: 20100615
  7. BISOPROLOL [Concomitant]
  8. ASPIRIN [Concomitant]
  9. ATORVASTATIN CALCIUM [Concomitant]
  10. ALLOPURINOL [Concomitant]

REACTIONS (1)
  - FISTULA [None]
